FAERS Safety Report 11848840 (Version 1)
Quarter: 2015Q4

REPORT INFORMATION
  Report Type: Spontaneous
  Country: US (occurrence: US)
  Receive Date: 20151218
  Receipt Date: 20151218
  Transmission Date: 20160305
  Serious: Yes (Other)
  Sender: FDA-Public Use
  Company Number: US-009507513-1512USA008379

PATIENT
  Sex: Female

DRUGS (3)
  1. JANUMET [Suspect]
     Active Substance: METFORMIN HYDROCHLORIDE\SITAGLIPTIN PHOSPHATE
     Dosage: UNK
     Route: 048
  2. HUMALOG [Concomitant]
     Active Substance: INSULIN LISPRO
     Dosage: UNK
  3. COZAAR [Concomitant]
     Active Substance: LOSARTAN POTASSIUM
     Dosage: UNK
     Route: 048

REACTIONS (16)
  - Pancreatic insufficiency [Recovering/Resolving]
  - Erythema [Recovering/Resolving]
  - Joint swelling [Recovering/Resolving]
  - Food intolerance [Recovering/Resolving]
  - Diarrhoea [Recovering/Resolving]
  - Renal failure [Recovering/Resolving]
  - Staphylococcal infection [Recovering/Resolving]
  - Oedema [Recovering/Resolving]
  - Hypoaesthesia [Recovering/Resolving]
  - Neuropathy peripheral [Recovering/Resolving]
  - Cyanosis [Recovering/Resolving]
  - Functional gastrointestinal disorder [Recovering/Resolving]
  - Cellulitis [Recovering/Resolving]
  - Blood glucose fluctuation [Recovering/Resolving]
  - Dyskinesia [Recovering/Resolving]
  - Constipation [Recovering/Resolving]
